FAERS Safety Report 18786533 (Version 1)
Quarter: 2021Q1

REPORT INFORMATION
  Report Type: Spontaneous
  Country: US (occurrence: US)
  Receive Date: 20210125
  Receipt Date: 20210125
  Transmission Date: 20210419
  Serious: Yes (Hospitalization)
  Sender: FDA-Public Use
  Company Number: None

PATIENT
  Age: 82 Year
  Sex: Male
  Weight: 90.72 kg

DRUGS (1)
  1. DULAGLUTIDE (DULAGLUTIDE 0.75MG/0.5ML INJ, SOLN PEN) [Suspect]
     Active Substance: DULAGLUTIDE
     Indication: DIABETES MELLITUS
     Route: 058
     Dates: start: 20200909, end: 20200930

REACTIONS (7)
  - Fall [None]
  - Vomiting [None]
  - Hypophagia [None]
  - Acute kidney injury [None]
  - Balance disorder [None]
  - Hypovolaemia [None]
  - Hypotension [None]

NARRATIVE: CASE EVENT DATE: 20201021
